FAERS Safety Report 6290476-X (Version None)
Quarter: 2009Q3

REPORT INFORMATION
  Report Type: 
  Country: None (occurrence: None)
  Receive Date: 20090730
  Receipt Date: 20090505
  Transmission Date: 20100115
  Serious: No
  Sender: FDA-Public Use
  Company Number: US-BRISTOL-MYERS SQUIBB COMPANY-14611438

PATIENT
  Age: 74 Year
  Sex: Male
  Weight: 69 kg

DRUGS (4)
  1. COUMADIN [Suspect]
     Dosage: 1 DOSAGEFORM = 5 MG 5 TIMES A WEEK AND 7.5MG ON TUESDAY AND FRIDAY
  2. PROTONIX [Concomitant]
  3. DIOVAN [Concomitant]
  4. TOPROL-XL [Concomitant]

REACTIONS (1)
  - INTERNATIONAL NORMALISED RATIO FLUCTUATION [None]
